FAERS Safety Report 4733874-5 (Version None)
Quarter: 2005Q3

REPORT INFORMATION
  Report Type: 
  Country: None (occurrence: None)
  Receive Date: 20050721
  Receipt Date: 20050429
  Transmission Date: 20060218
  Serious: No
  Sender: FDA-Public Use
  Company Number: 2005SP000456

PATIENT
  Age: 84 Year
  Sex: Male
  Weight: 72.5755 kg

DRUGS (2)
  1. LUNESTA [Suspect]
     Indication: INSOMNIA
     Dosage: 1 MG;ORAL,      2 MG;ORAL
     Route: 048
     Dates: start: 20050425
  2. LUNESTA [Suspect]
     Indication: INSOMNIA
     Dosage: 1 MG;ORAL,      2 MG;ORAL
     Route: 048
     Dates: start: 20050426

REACTIONS (2)
  - INSOMNIA [None]
  - SOMNOLENCE [None]
